FAERS Safety Report 7561369-2 (Version None)
Quarter: 2011Q2

REPORT INFORMATION
  Report Type: 
  Country: None (occurrence: None)
  Receive Date: 20110621
  Receipt Date: 20110127
  Transmission Date: 20111010
  Serious: No
  Sender: FDA-Public Use
  Company Number: US-ASTRAZENECA-2011SE04785

PATIENT
  Age: 48 Year
  Sex: Female

DRUGS (1)
  1. PULMICORT FLEXHALER [Suspect]
     Dosage: 1 PUFF BID
     Route: 055
     Dates: start: 20110101

REACTIONS (2)
  - COUGH [None]
  - DRUG INEFFECTIVE [None]
